FAERS Safety Report 15901297 (Version 1)
Quarter: 2019Q1

REPORT INFORMATION
  Report Type: Spontaneous
  Country: CN (occurrence: CN)
  Receive Date: 20190201
  Receipt Date: 20190201
  Transmission Date: 20190417
  Serious: Yes (Other)
  Sender: FDA-Public Use
  Company Number: CN-PFIZER INC-2019038871

PATIENT
  Age: 88 Year
  Sex: Female

DRUGS (2)
  1. ZYVOX [Suspect]
     Active Substance: LINEZOLID
     Indication: THERAPEUTIC PROCEDURE
     Dosage: 0.6 G, 2X/DAY
     Route: 041
     Dates: start: 20181121, end: 20181126
  2. SULPERAZON [Suspect]
     Active Substance: CEFOPERAZONE SODIUM\SULBACTAM SODIUM
     Indication: THERAPEUTIC PROCEDURE
     Dosage: 3 G, 3X/DAY
     Route: 041
     Dates: start: 20181120, end: 20181126

REACTIONS (3)
  - White blood cell count decreased [Recovering/Resolving]
  - Platelet count decreased [Recovering/Resolving]
  - Gastrointestinal haemorrhage [Unknown]

NARRATIVE: CASE EVENT DATE: 20181126
